FAERS Safety Report 13645271 (Version 1)
Quarter: 2017Q2

REPORT INFORMATION
  Report Type: Spontaneous
  Country: US (occurrence: US)
  Receive Date: 20170612
  Receipt Date: 20170612
  Transmission Date: 20170830
  Serious: No
  Sender: FDA-Public Use
  Company Number: US-ROCHE-1546542

PATIENT
  Age: 56 Year
  Sex: Female

DRUGS (1)
  1. XELODA [Suspect]
     Active Substance: CAPECITABINE
     Indication: BREAST CANCER
     Dosage: BID FOR 14 DAYS, OFF 7 DAYS, REPEAT EVERY 21
     Route: 048
     Dates: start: 20141009

REACTIONS (1)
  - Palmar-plantar erythrodysaesthesia syndrome [Unknown]
